FAERS Safety Report 8078240-2 (Version None)
Quarter: 2012Q1

REPORT INFORMATION
  Report Type: 
  Country: None (occurrence: None)
  Receive Date: 20120127
  Receipt Date: 20110121
  Transmission Date: 20120608
  Serious: Yes (Hospitalization, Other)
  Sender: FDA-Public Use
  Company Number: US-ABBOTT-09P-163-0499720-00

PATIENT
  Sex: Female
  Weight: 56.75 kg

DRUGS (7)
  1. HUMIRA [Suspect]
     Indication: PSORIASIS
     Route: 058
     Dates: start: 20070101, end: 20081001
  2. HUMIRA [Suspect]
     Dates: start: 20081201
  3. HUMIRA [Suspect]
     Dates: start: 20101201
  4. HUMIRA [Suspect]
  5. HUMIRA [Suspect]
     Dosage: LAST DOSE 04 OCT 2011
     Dates: start: 20111004, end: 20111004
  6. NEXIUM [Concomitant]
     Indication: GASTROOESOPHAGEAL REFLUX DISEASE
  7. IBUPROFEN [Concomitant]
     Indication: OSTEOARTHRITIS
     Dosage: ABOUT ONCE A WEEK

REACTIONS (21)
  - DIARRHOEA [None]
  - DIZZINESS [None]
  - EAR PAIN [None]
  - PSORIATIC ARTHROPATHY [None]
  - EAR INFECTION [None]
  - HOT FLUSH [None]
  - HERPES ZOSTER [None]
  - DIVERTICULITIS [None]
  - URINARY TRACT INFECTION [None]
  - CONDITION AGGRAVATED [None]
  - SURGERY [None]
  - CLOSTRIDIAL INFECTION [None]
  - MOTION SICKNESS [None]
  - PSORIASIS [None]
  - NEUROPATHY PERIPHERAL [None]
  - INNER EAR DISORDER [None]
  - HYPOAESTHESIA [None]
  - ARTHRALGIA [None]
  - IRRITABLE BOWEL SYNDROME [None]
  - NEUROLOGICAL SYMPTOM [None]
  - MUSCULOSKELETAL STIFFNESS [None]
